FAERS Safety Report 20300369 (Version 2)
Quarter: 2022Q2

REPORT INFORMATION
  Report Type: Spontaneous
  Country: US (occurrence: US)
  Receive Date: 20220105
  Receipt Date: 20220412
  Transmission Date: 20220720
  Serious: No
  Sender: FDA-Public Use
  Company Number: US-BoehringerIngelheim-2022-BI-146799

PATIENT
  Age: 58 Year
  Sex: Male

DRUGS (2)
  1. JARDIANCE [Suspect]
     Active Substance: EMPAGLIFLOZIN
     Indication: Product used for unknown indication
  2. DULAGLUTIDE [Suspect]
     Active Substance: DULAGLUTIDE
     Indication: Product used for unknown indication
     Dosage: PEN, DISPOSABLE/PREFILLED PEN

REACTIONS (6)
  - Illness [Unknown]
  - Swelling [Unknown]
  - Urinary tract infection [Unknown]
  - Blood glucose abnormal [Unknown]
  - Fungal infection [Unknown]
  - Nausea [Unknown]
